FAERS Safety Report 25668322 (Version 1)
Quarter: 2025Q3

REPORT INFORMATION
  Report Type: Spontaneous
  Country: US (occurrence: US)
  Receive Date: 20250812
  Receipt Date: 20250812
  Transmission Date: 20251020
  Serious: No
  Sender: BIOGEN
  Company Number: US-BIOGEN-2024BI01244334

PATIENT
  Sex: Female

DRUGS (3)
  1. TYSABRI [Suspect]
     Active Substance: NATALIZUMAB
     Indication: Multiple sclerosis
     Route: 050
     Dates: start: 20210927
  2. TYSABRI [Suspect]
     Active Substance: NATALIZUMAB
     Route: 050
     Dates: start: 20180308, end: 20200812
  3. TYSABRI [Suspect]
     Active Substance: NATALIZUMAB
     Route: 050
     Dates: start: 20120118, end: 20170629

REACTIONS (11)
  - Optic neuritis [Unknown]
  - Speech disorder [Unknown]
  - Trigeminal neuralgia [Unknown]
  - Toothache [Unknown]
  - Laryngitis [Unknown]
  - Eye inflammation [Unknown]
  - Eye disorder [Unknown]
  - Laryngeal disorder [Unknown]
  - Vocal cord disorder [Unknown]
  - Vomiting [Unknown]
  - Headache [Unknown]
